FAERS Safety Report 5387469-3 (Version None)
Quarter: 2007Q3

REPORT INFORMATION
  Report Type: 
  Country: None (occurrence: None)
  Receive Date: 20070712
  Receipt Date: 20070705
  Transmission Date: 20080115
  Serious: Yes (Other)
  Sender: FDA-Public Use
  Company Number: 2007-03187

PATIENT
  Age: 58 Year
  Sex: Male

DRUGS (1)
  1. LIDOCAINE 1% [Suspect]
     Indication: HIP ARTHROPLASTY
     Dosage: TEST DOSE, EPIDURAL
     Route: 008

REACTIONS (1)
  - ANAESTHETIC COMPLICATION [None]
